FAERS Safety Report 17051937 (Version 1)
Quarter: 2019Q4

REPORT INFORMATION
  Report Type: Spontaneous
  Country: SE (occurrence: SE)
  Receive Date: 20191120
  Receipt Date: 20191120
  Transmission Date: 20200122
  Serious: Yes (Other)
  Sender: FDA-Public Use
  Company Number: SE-ACCORD-161433

PATIENT
  Age: 59 Year
  Sex: Male

DRUGS (5)
  1. METFORMIN [Concomitant]
     Active Substance: METFORMIN HYDROCHLORIDE
     Dates: start: 2000, end: 2019
  2. PREDNISOLONE. [Concomitant]
     Active Substance: PREDNISOLONE
     Dates: start: 2016, end: 2019
  3. METOPROLOL. [Concomitant]
     Active Substance: METOPROLOL
     Dates: start: 2010, end: 2019
  4. RAMIPRIL. [Suspect]
     Active Substance: RAMIPRIL
     Indication: HYPERTENSION
     Dosage: 5 MG 1 TIME, DAILY
     Route: 048
     Dates: start: 2016
  5. FELODIPINE. [Concomitant]
     Active Substance: FELODIPINE
     Dates: start: 2010, end: 2019

REACTIONS (1)
  - Gingival hypertrophy [Not Recovered/Not Resolved]

NARRATIVE: CASE EVENT DATE: 20190130
